FAERS Safety Report 9962093 (Version 1)
Quarter: 2014Q1

REPORT INFORMATION
  Report Type: Spontaneous
  Country: US (occurrence: None)
  Receive Date: 20140127
  Receipt Date: 20140127
  Transmission Date: 20141002
  Serious: Yes (Other)
  Sender: FDA-Public Use
  Company Number: 1209385

PATIENT
  Age: 35 Year
  Sex: Female

DRUGS (2)
  1. ALTEPLASE [Suspect]
     Indication: DEEP VEIN THROMBOSIS
     Dosage: INTRAVENOUS (NOT OTHERWISE SPECIFIED)?
     Route: 042
  2. HEPARIN (HEPARIN SODIUM) [Suspect]
     Indication: DEEP VEIN THROMBOSIS
     Dosage: INTRAVENOUS (NOT OTHERWISE SPECIFIED)
     Route: 042

REACTIONS (1)
  - Drug effect decreased [None]
